FAERS Safety Report 7572942-X (Version None)
Quarter: 2011Q2

REPORT INFORMATION
  Report Type: 
  Country: None (occurrence: None)
  Receive Date: 20110627
  Receipt Date: 20110616
  Transmission Date: 20111010
  Serious: Yes (Hospitalization)
  Sender: FDA-Public Use
  Company Number: JP-JNJFOC-20091002443

PATIENT
  Age: 69 Year
  Sex: Female
  Weight: 61 kg

DRUGS (8)
  1. LEVOFLOXACIN [Concomitant]
     Indication: CYSTITIS
     Route: 048
     Dates: start: 20090727, end: 20090801
  2. DOXORUBICIN HCL [Suspect]
     Indication: OVARIAN CANCER RECURRENT
     Route: 042
     Dates: start: 20090722, end: 20090722
  3. CONIEL [Concomitant]
     Route: 048
  4. NEU-UP [Concomitant]
     Indication: NEUTROPENIA
     Route: 058
     Dates: start: 20090803, end: 20090810
  5. FOY [Concomitant]
     Indication: DISSEMINATED INTRAVASCULAR COAGULATION
     Route: 042
     Dates: start: 20090802, end: 20090805
  6. BIOFERMIN [Concomitant]
     Indication: PROPHYLAXIS
     Route: 048
     Dates: start: 20090725, end: 20090728
  7. AZUNOL [Concomitant]
     Indication: PROPHYLAXIS
     Route: 049
     Dates: start: 20090722
  8. PRIMPERAN TAB [Concomitant]
     Indication: PROPHYLAXIS
     Route: 048
     Dates: start: 20090817

REACTIONS (4)
  - HEPATIC FUNCTION ABNORMAL [None]
  - DISSEMINATED INTRAVASCULAR COAGULATION [None]
  - BONE MARROW FAILURE [None]
  - SEPSIS [None]
